FAERS Safety Report 4651888-0 (Version None)
Quarter: 2005Q2

REPORT INFORMATION
  Report Type: 
  Country: None (occurrence: None)
  Receive Date: 20050504
  Receipt Date: 20050426
  Transmission Date: 20051028
  Serious: Yes (Death, Life-Threatening)
  Sender: FDA-Public Use
  Company Number: FR-GLAXOSMITHKLINE-B0379662A

PATIENT
  Age: 61 Year
  Sex: Female

DRUGS (2)
  1. TOPOTECAN [Suspect]
     Indication: OVARIAN CANCER
     Route: 042
     Dates: start: 20030618, end: 20030622
  2. CYCLOPHOSPHAMIDE [Suspect]
     Indication: OVARIAN CANCER
     Route: 042
     Dates: start: 20030618, end: 20030622

REACTIONS (4)
  - APLASIA [None]
  - MULTI-ORGAN FAILURE [None]
  - SEPTIC SHOCK [None]
  - STREPTOCOCCAL INFECTION [None]
